FAERS Safety Report 5465678-2 (Version None)
Quarter: 2007Q3

REPORT INFORMATION
  Report Type: 
  Country: None (occurrence: None)
  Receive Date: 20070924
  Receipt Date: 20070913
  Transmission Date: 20080115
  Serious: Yes (Hospitalization)
  Sender: FDA-Public Use
  Company Number: DE-ROCHE-509198

PATIENT
  Age: 46 Year
  Sex: Male
  Weight: 80 kg

DRUGS (3)
  1. PEG-INTERFERON A-2A (RO 25-8310) [Suspect]
     Dosage: DOSAGE: 180 MCG WEEKLY.
     Route: 058
     Dates: start: 20070601
  2. PEG-INTERFERON A-2A (RO 25-8310) [Suspect]
     Dosage: IT WAS REPORTED THAT THERAPY WITH PEGASYS WAS ^DROPPED^ PRIOR OR AFTER THE EVENT ONSET.
     Route: 058
  3. RIBAVIRIN [Suspect]
     Route: 065

REACTIONS (2)
  - EPISTAXIS [None]
  - GENERAL PHYSICAL HEALTH DETERIORATION [None]
